FAERS Safety Report 9440151 (Version 16)
Quarter: 2014Q3

REPORT INFORMATION
  Report Type: Report from Study
  Country: CA (occurrence: CA)
  Receive Date: 20130805
  Receipt Date: 20140912
  Transmission Date: 20150326
  Serious: Yes (Hospitalization, Other)
  Sender: FDA-Public Use
  Company Number: CA-BAYER-2013-094152

PATIENT
  Age: 48 Year
  Sex: Male

DRUGS (5)
  1. STIVARGA [Suspect]
     Active Substance: REGORAFENIB
     Indication: COLORECTAL CANCER METASTATIC
     Dosage: 160 MG, QD
     Route: 048
     Dates: start: 20130718, end: 201407
  2. VITAMIN B12 [Concomitant]
     Active Substance: CYANOCOBALAMIN
     Dosage: UNK
     Dates: start: 2008
  3. CALCIUM [Concomitant]
     Active Substance: CALCIUM
     Dosage: UNK
     Dates: start: 2008
  4. FLORASTOR [Concomitant]
     Active Substance: SACCHAROMYCES CEREVISIAE
     Indication: DIARRHOEA
     Dosage: 250 MG, BID
  5. VITAMIN D [Concomitant]
     Active Substance: CHOLECALCIFEROL
     Dosage: UNK
     Dates: start: 2008

REACTIONS (29)
  - Weight decreased [None]
  - Stoma site haemorrhage [None]
  - Haemoglobin decreased [None]
  - Fatigue [None]
  - Dry skin [None]
  - Abdominal abscess [Not Recovered/Not Resolved]
  - Diarrhoea [None]
  - Oedema peripheral [None]
  - Hypotension [None]
  - Abdominal abscess [Unknown]
  - Dehydration [None]
  - Impaired healing [Not Recovered/Not Resolved]
  - Colorectal cancer metastatic [Not Recovered/Not Resolved]
  - Haemoglobin decreased [None]
  - Abdominal hernia [None]
  - Erythema [Not Recovered/Not Resolved]
  - Asthenia [None]
  - Vomiting [Not Recovered/Not Resolved]
  - Malaise [None]
  - Urinary tract infection [Not Recovered/Not Resolved]
  - Stoma site haemorrhage [None]
  - Nausea [Not Recovered/Not Resolved]
  - Hyperkeratosis [None]
  - Skin fissures [None]
  - Dehydration [None]
  - Haemoglobin decreased [None]
  - Vomiting [None]
  - Oropharyngeal pain [None]
  - Diarrhoea [Not Recovered/Not Resolved]

NARRATIVE: CASE EVENT DATE: 201307
